FAERS Safety Report 10765187 (Version 2)
Quarter: 2015Q1

REPORT INFORMATION
  Report Type: Report from Study
  Country: DE (occurrence: DE)
  Receive Date: 20150205
  Receipt Date: 20150303
  Transmission Date: 20150721
  Serious: Yes (Death)
  Sender: FDA-Public Use
  Company Number: DE-ROCHE-1532608

PATIENT
  Age: 64 Year
  Sex: Male
  Weight: 103 kg

DRUGS (5)
  1. VINCRISTIN [Suspect]
     Active Substance: VINCRISTINE
     Indication: POST TRANSPLANT LYMPHOPROLIFERATIVE DISORDER
     Route: 065
     Dates: start: 20060307, end: 20060412
  2. PREDNISOLON [Suspect]
     Active Substance: PREDNISOLONE
     Indication: POST TRANSPLANT LYMPHOPROLIFERATIVE DISORDER
     Route: 065
     Dates: start: 20060307, end: 20060412
  3. RITUXIMAB [Suspect]
     Active Substance: RITUXIMAB
     Indication: POST TRANSPLANT LYMPHOPROLIFERATIVE DISORDER
     Route: 065
     Dates: start: 20060113, end: 20060202
  4. CYCLOPHOSPHAMIDE. [Suspect]
     Active Substance: CYCLOPHOSPHAMIDE
     Indication: POST TRANSPLANT LYMPHOPROLIFERATIVE DISORDER
     Route: 065
     Dates: start: 20060307, end: 20060412
  5. DOXORUBICIN [Suspect]
     Active Substance: DOXORUBICIN
     Indication: POST TRANSPLANT LYMPHOPROLIFERATIVE DISORDER
     Route: 065
     Dates: start: 20060307, end: 20060412

REACTIONS (1)
  - Hepatic haemorrhage [Fatal]

NARRATIVE: CASE EVENT DATE: 20060503
